FAERS Safety Report 6487117-5 (Version None)
Quarter: 2009Q4

REPORT INFORMATION
  Report Type: 
  Country: None (occurrence: None)
  Receive Date: 20091209
  Receipt Date: 20091209
  Transmission Date: 20100525
  Serious: Yes (Disabling, Other)
  Sender: FDA-Public Use
  Company Number: None

PATIENT
  Age: 41 Year
  Sex: Female
  Weight: 49.8957 kg

DRUGS (1)
  1. FENTANYL-100 [Suspect]
     Indication: TRIGEMINAL NEURALGIA
     Dosage: 1 PATCH Q 72 HR Q 72 HR TRANSDERMAL
     Route: 062
     Dates: start: 20050101, end: 20091208

REACTIONS (5)
  - DEVICE LEAKAGE [None]
  - INCORRECT DOSE ADMINISTERED [None]
  - OVERDOSE [None]
  - PRODUCT ADHESION ISSUE [None]
  - PRODUCT QUALITY ISSUE [None]
